FAERS Safety Report 5486426-6 (Version None)
Quarter: 2007Q3

REPORT INFORMATION
  Report Type: 
  Country: None (occurrence: None)
  Receive Date: 20070918
  Receipt Date: 20070723
  Transmission Date: 20080115
  Serious: Yes (Hospitalization)
  Sender: FDA-Public Use
  Company Number: 13853437

PATIENT
  Sex: Female
  Weight: 53.06 kg

DRUGS (7)
  1. EMSAM [Suspect]
     Indication: DEPRESSION
     Dosage: 9 MILLIGRAM,24 HOUR TD
     Route: 062
     Dates: start: 20060915
  2. DEPAKOTE ER [Concomitant]
  3. LOESTRIN 21 1/20 [Concomitant]
  4. SIMVASTATIN [Concomitant]
  5. AMBIEN CR [Concomitant]
  6. ZOFRAN [Concomitant]
  7. ATIVAN [Concomitant]

REACTIONS (3)
  - ABDOMINAL PAIN [None]
  - ANXIETY [None]
  - OVERDOSE [None]
